FAERS Safety Report 6713386-X (Version None)
Quarter: 2010Q2

REPORT INFORMATION
  Report Type: 
  Country: None (occurrence: None)
  Receive Date: 20100506
  Receipt Date: 20100426
  Transmission Date: 20101027
  Serious: No
  Sender: FDA-Public Use
  Company Number: US-TEVA-232317USA

PATIENT
  Sex: Female

DRUGS (2)
  1. CLARAVIS [Suspect]
     Route: 048
     Dates: start: 20100211, end: 20100420
  2. CONTRACEPTIVES NOS [Concomitant]

REACTIONS (1)
  - UNINTENDED PREGNANCY [None]
